FAERS Safety Report 4339716-4 (Version None)
Quarter: 2004Q1

REPORT INFORMATION
  Report Type: 
  Country: None (occurrence: None)
  Receive Date: 20040329
  Receipt Date: 20040127
  Transmission Date: 20041129
  Serious: No
  Sender: FDA-Public Use
  Company Number: 04P-163-0249513-00

PATIENT
  Sex: 0

DRUGS (2)
  1. HUMIRA [Suspect]
     Dosage: 40 MG, 1 IN 2 WK, SUBCUTANEOUS
     Route: 058
  2. CELECOXIB [Concomitant]

REACTIONS (2)
  - BLISTER [None]
  - RASH [None]
